FAERS Safety Report 7667994-2 (Version None)
Quarter: 2011Q3

REPORT INFORMATION
  Report Type: 
  Country: None (occurrence: None)
  Receive Date: 20110808
  Receipt Date: 20110727
  Transmission Date: 20111222
  Serious: Yes (Life-Threatening, Hospitalization)
  Sender: FDA-Public Use
  Company Number: GB-AMGEN-GBRSP2011027301

PATIENT
  Age: 62 Year
  Sex: Male

DRUGS (10)
  1. ACETAMINOPHEN [Concomitant]
     Indication: PAIN
     Dosage: 1 G, 4X/DAY
     Route: 048
  2. ENBREL [Suspect]
     Indication: ANKYLOSING SPONDYLITIS
     Dosage: 50 MG, WEEKLY
     Route: 058
  3. ARCOXIA [Suspect]
     Indication: PAIN
     Dosage: 90 MG, 1X/DAY
     Route: 048
  4. ATENOLOL [Concomitant]
     Indication: HYPERTENSION
     Dosage: 50 MG, 1X/DAY
     Route: 048
  5. DIHYDROCODEINE BITARTRATE INJ [Concomitant]
     Indication: PAIN
     Dosage: UNK
     Route: 048
  6. AMITRIPTYLINE HCL [Concomitant]
     Indication: NEURALGIA
     Dosage: 10 MG, 1X/DAY
     Route: 048
  7. PREGABALIN [Concomitant]
     Indication: PAIN
     Dosage: 150 MG, NOCTE
     Route: 048
  8. LOSARTAN POTASSIUM [Concomitant]
     Indication: HYPERTENSION
     Dosage: 50 MG, 1X/DAY
     Route: 048
  9. TRAMADOL HCL [Concomitant]
     Indication: PAIN
     Dosage: UNK
     Route: 048
  10. NAPROXEN [Concomitant]
     Dosage: UNK

REACTIONS (2)
  - ISCHAEMIC STROKE [None]
  - DRUG INEFFECTIVE [None]
